FAERS Safety Report 4485830-2 (Version None)
Quarter: 2004Q3

REPORT INFORMATION
  Report Type: 
  Country: None (occurrence: None)
  Receive Date: 20040921
  Receipt Date: 20031104
  Transmission Date: 20050211
  Serious: Yes (Death, Hospitalization)
  Sender: FDA-Public Use
  Company Number: 163-20785-03110064

PATIENT
  Age: 74 Year
  Sex: Male
  Weight: 70.8 kg

DRUGS (11)
  1. THALOMID [Suspect]
     Indication: MULTIPLE MYELOMA
     Dosage: 100 MG, DAILY, ORAL
     Route: 048
  2. VINCRISTINE [Suspect]
     Indication: MULTIPLE MYELOMA
  3. ADRIAMYCIN PFS [Suspect]
     Indication: MULTIPLE MYELOMA
  4. DEXAMETHASONE [Suspect]
     Indication: MULTIPLE MYELOMA
  5. COLACE (DOCUSATE SODIUM) (CAPSULES) [Concomitant]
  6. COUMADIN [Concomitant]
  7. ACYCLOVIR [Concomitant]
  8. COMPAZINE [Concomitant]
  9. SENOKOT (SENNA FRUIT) (TABLETS) [Concomitant]
  10. OXYCODONE (OXYCODONE) [Concomitant]
  11. MYCELEX [Concomitant]

REACTIONS (7)
  - DEATH [None]
  - DISEASE PROGRESSION [None]
  - HAEMOGLOBIN DECREASED [None]
  - HAEMORRHAGE [None]
  - LARYNGITIS [None]
  - ORAL CAVITY NEOPLASM SURGERY [None]
  - TOOTH EXTRACTION [None]
